FAERS Safety Report 6369412-3 (Version None)
Quarter: 2009Q3

REPORT INFORMATION
  Report Type: 
  Country: None (occurrence: None)
  Receive Date: 20090917
  Receipt Date: 20080910
  Transmission Date: 20100115
  Serious: Yes (Death)
  Sender: FDA-Public Use
  Company Number: 2008AL010864

PATIENT
  Age: 62 Year
  Sex: Male

DRUGS (13)
  1. DIGOXIN [Suspect]
     Dosage: PO
     Route: 048
  2. ASPIRIN [Concomitant]
  3. PROTONIX [Concomitant]
  4. MULTI-VITAMIN [Concomitant]
  5. LASIX [Concomitant]
  6. POTASSIUM CHLORIDE [Concomitant]
  7. ALDACTONE [Concomitant]
  8. COREG [Concomitant]
  9. ALTACE [Concomitant]
  10. METOLAZONE [Concomitant]
  11. ZANTAC [Concomitant]
  12. IRON SULFATETHIAMIN COMPOUND TAB [Concomitant]
  13. LISINOPRIL [Concomitant]

REACTIONS (10)
  - ANXIETY [None]
  - CARDIAC FAILURE CONGESTIVE [None]
  - ECONOMIC PROBLEM [None]
  - HYDROCELE [None]
  - HYPERTENSION [None]
  - ILL-DEFINED DISORDER [None]
  - MULTIPLE INJURIES [None]
  - MYOCARDIAL INFARCTION [None]
  - PAIN [None]
  - RENAL DISORDER [None]
